FAERS Safety Report 8550902 (Version 21)
Quarter: 2015Q3

REPORT INFORMATION
  Report Type: Report from Study
  Country: CA (occurrence: CA)
  Receive Date: 20120508
  Receipt Date: 20150921
  Transmission Date: 20151125
  Serious: Yes (Life-Threatening, Hospitalization, Other)
  Sender: FDA-Public Use
  Company Number: PHHY2012CA038477

PATIENT
  Age: 87 Year
  Sex: Male

DRUGS (6)
  1. EXELON [Concomitant]
     Active Substance: RIVASTIGMINE TARTRATE
     Indication: MEMORY IMPAIRMENT
     Route: 065
  2. SANDOSTATIN [Suspect]
     Active Substance: OCTREOTIDE ACETATE
     Indication: NEUROENDOCRINE TUMOUR
     Dosage: TEST DOSE
     Route: 058
     Dates: start: 20100917, end: 20100917
  3. REMERON [Concomitant]
     Active Substance: MIRTAZAPINE
     Dosage: 15 MG, AT BED TIME FOR 2 WEEKS
     Route: 065
     Dates: end: 20150522
  4. SANDOSTATIN LAR DEPOT [Suspect]
     Active Substance: OCTREOTIDE ACETATE
     Indication: NEUROENDOCRINE TUMOUR
     Dosage: 30 MG, EVERY 4 WEEKS
     Route: 030
     Dates: start: 20100928
  5. REMERON [Concomitant]
     Active Substance: MIRTAZAPINE
     Indication: ANXIETY
     Dosage: 30 MG, AT BED TIME
     Route: 065
  6. APO-LEVOCARB [Concomitant]
     Active Substance: CARBIDOPA\LEVODOPA
     Indication: PARKINSON^S DISEASE
     Route: 065

REACTIONS (34)
  - Neoplasm skin [Unknown]
  - Intestinal obstruction [Unknown]
  - Gait disturbance [Unknown]
  - Choking [Unknown]
  - Joint swelling [Unknown]
  - Oedema [Unknown]
  - Nausea [Unknown]
  - Cerebrovascular accident [Recovering/Resolving]
  - Pneumonia [Recovered/Resolved]
  - Weight decreased [Recovering/Resolving]
  - Cystitis [Unknown]
  - Malaise [Unknown]
  - Oedema peripheral [Not Recovered/Not Resolved]
  - Somnolence [Recovering/Resolving]
  - Blood pressure systolic increased [Unknown]
  - Myocardial infarction [Unknown]
  - Wound haemorrhage [Recovered/Resolved]
  - Productive cough [Not Recovered/Not Resolved]
  - Upper respiratory tract infection [Unknown]
  - Depressed mood [Unknown]
  - Asthenia [Unknown]
  - Terminal state [Unknown]
  - Abasia [Unknown]
  - Respiratory tract congestion [Unknown]
  - Pyrexia [Unknown]
  - Visual acuity reduced [Recovering/Resolving]
  - Fatigue [Unknown]
  - Heart rate decreased [Unknown]
  - Decreased appetite [Unknown]
  - Blindness unilateral [Unknown]
  - Tremor [Unknown]
  - Cough [Recovered/Resolved]
  - Vomiting [Unknown]
  - Dizziness [Unknown]

NARRATIVE: CASE EVENT DATE: 201112
